FAERS Safety Report 17565130 (Version 8)
Quarter: 2020Q2

REPORT INFORMATION
  Report Type: Report from Study
  Country: MX (occurrence: MX)
  Receive Date: 20200320
  Receipt Date: 20200610
  Transmission Date: 20200713
  Serious: Yes (Life-Threatening, Other)
  Sender: FDA-Public Use
  Company Number: NVSC2020MX078830

PATIENT
  Age: 44 Year
  Sex: Male
  Weight: 81 kg

DRUGS (6)
  1. EXFORGE HCT [Suspect]
     Active Substance: AMLODIPINE BESYLATE\HYDROCHLOROTHIAZIDE\VALSARTAN
     Dosage: 4 DF (2 IN THE MORNING AND 2 AT NIGHT (WITH AT LEAST 2 HOURS IN BETWEEN))
     Route: 048
  2. EXFORGE HCT [Suspect]
     Active Substance: AMLODIPINE BESYLATE\HYDROCHLOROTHIAZIDE\VALSARTAN
     Indication: HYPERTENSION
     Dosage: 1 DF (5/160/12.5 MG), BID (ONE AT DAY AND IN NIGHT) (STARTED 1 AND 1/2 YEARS AGO) EVERY 12 HRS
     Route: 048
     Dates: start: 20180919
  3. GLIBENCLAMIDE [Concomitant]
     Active Substance: GLYBURIDE
     Indication: BLOOD GLUCOSE INCREASED
     Dosage: 5 MG, BID (ONE AFTER LUNCH AND ANOTHER ONE AT NIGHT)
     Route: 048
  4. GALVUS MET [Suspect]
     Active Substance: METFORMIN HYDROCHLORIDE\VILDAGLIPTIN
     Indication: DIABETES MELLITUS
     Dosage: 2 DF (1 IN THE MORNING AND 1 AT NIGHT)
     Route: 048
  5. GALVUS MET [Suspect]
     Active Substance: METFORMIN HYDROCHLORIDE\VILDAGLIPTIN
     Indication: BLOOD GLUCOSE INCREASED
     Dosage: 1 DF, BID (ONE AFTER LUNCH AND ANOTHER ONE AT NIGHT) (STARTED 2 YEARS AGO) (50/850 MG)
     Route: 048
     Dates: start: 20180919
  6. METOPROLOL. [Concomitant]
     Active Substance: METOPROLOL
     Indication: HEART RATE ABNORMAL
     Dosage: 0.5 DF, BID (MORNING AND NIGHT)
     Route: 048
     Dates: start: 20180919

REACTIONS (36)
  - Blood pressure increased [Recovered/Resolved]
  - Diabetic retinopathy [Unknown]
  - Blood pressure decreased [Recovered/Resolved]
  - Pain [Recovered/Resolved]
  - Hypertensive crisis [Not Recovered/Not Resolved]
  - Hypertension [Recovered/Resolved]
  - Blindness unilateral [Not Recovered/Not Resolved]
  - Diabetes mellitus [Unknown]
  - Dysphemia [Unknown]
  - Anxiety [Unknown]
  - Anxiety [Not Recovered/Not Resolved]
  - Cerebral haemorrhage [Recovered/Resolved with Sequelae]
  - Body temperature abnormal [Not Recovered/Not Resolved]
  - Arthralgia [Recovered/Resolved]
  - Oedema peripheral [Recovered/Resolved]
  - Nausea [Recovered/Resolved]
  - Insomnia [Recovered/Resolved]
  - Diabetic neuropathy [Unknown]
  - Blood pressure increased [Unknown]
  - Fatigue [Not Recovered/Not Resolved]
  - Tachycardia [Recovered/Resolved]
  - Retinal detachment [Unknown]
  - Visual impairment [Unknown]
  - Photophobia [Unknown]
  - Feeling of despair [Unknown]
  - Inflammation [Recovered/Resolved]
  - Inappropriate schedule of product administration [Unknown]
  - Nausea [Recovered/Resolved]
  - Chills [Recovered/Resolved]
  - Facial paralysis [Recovered/Resolved]
  - Musculoskeletal stiffness [Recovered/Resolved]
  - Speech disorder [Unknown]
  - Influenza [Unknown]
  - Oropharyngeal pain [Unknown]
  - Discomfort [Recovered/Resolved]
  - Vomiting [Not Recovered/Not Resolved]

NARRATIVE: CASE EVENT DATE: 20180919
